FAERS Safety Report 14455059 (Version 16)
Quarter: 2020Q1

REPORT INFORMATION
  Report Type: Spontaneous
  Country: US (occurrence: US)
  Receive Date: 20180129
  Receipt Date: 20200302
  Transmission Date: 20200409
  Serious: Yes (Hospitalization)
  Sender: FDA-Public Use
  Company Number: US-ACTELION-A-NJ2018-166512

PATIENT
  Age: 52 Year
  Sex: Female
  Weight: 89.8 kg

DRUGS (13)
  1. OPSUMIT [Suspect]
     Active Substance: MACITENTAN
     Indication: PULMONARY ARTERIAL HYPERTENSION
     Dosage: 10 MG, QD
     Route: 048
  2. OXYGEN. [Concomitant]
     Active Substance: OXYGEN
  3. ADCIRCA [Concomitant]
     Active Substance: TADALAFIL
  4. ORENITRAM [Suspect]
     Active Substance: TREPROSTINIL
     Indication: PRODUCT USED FOR UNKNOWN INDICATION
     Dosage: 8.5 MG, TID
     Route: 065
  5. ORENITRAM [Suspect]
     Active Substance: TREPROSTINIL
     Dosage: 9 MG, TID
     Route: 065
  6. ORENITRAM [Suspect]
     Active Substance: TREPROSTINIL
     Dosage: UNK
     Route: 065
  7. ORENITRAM [Suspect]
     Active Substance: TREPROSTINIL
     Dosage: 8 MG, TID
     Route: 065
  8. REMODULIN [Suspect]
     Active Substance: TREPROSTINIL
     Dosage: UNK
     Route: 058
  9. METOLAZONE. [Concomitant]
     Active Substance: METOLAZONE
     Indication: SWELLING
  10. ELIQUIS [Concomitant]
     Active Substance: APIXABAN
  11. REMODULIN [Suspect]
     Active Substance: TREPROSTINIL
     Indication: PRODUCT USED FOR UNKNOWN INDICATION
     Dosage: UNK
     Route: 042
  12. ORENITRAM [Suspect]
     Active Substance: TREPROSTINIL
     Dosage: 5 MG, TID
     Route: 065
  13. ORENITRAM [Suspect]
     Active Substance: TREPROSTINIL
     Dosage: 10 MG, TID
     Route: 065

REACTIONS (25)
  - Abdominal distension [Unknown]
  - Chest pain [Unknown]
  - Subcutaneous drug absorption impaired [Unknown]
  - Swelling [Recovered/Resolved]
  - Complication associated with device [Recovering/Resolving]
  - Malaise [Recovering/Resolving]
  - Dyspnoea [Unknown]
  - Headache [Unknown]
  - Pulmonary arterial hypertension [Unknown]
  - Diarrhoea [Unknown]
  - Condition aggravated [Unknown]
  - Pain [Unknown]
  - Influenza [Not Recovered/Not Resolved]
  - Fluid retention [Recovering/Resolving]
  - Pneumonia [Not Recovered/Not Resolved]
  - Disease progression [Unknown]
  - Feeling abnormal [Unknown]
  - Heart rate increased [Unknown]
  - Bone pain [Unknown]
  - Vascular device infection [Unknown]
  - Catheter management [Unknown]
  - Oxygen consumption increased [Unknown]
  - Muscle spasms [Recovering/Resolving]
  - Nasal congestion [Unknown]
  - Dyspnoea exertional [Unknown]

NARRATIVE: CASE EVENT DATE: 20191114
